FAERS Safety Report 13858119 (Version 1)
Quarter: 2017Q3

REPORT INFORMATION
  Report Type: Spontaneous
  Country: US (occurrence: US)
  Receive Date: 20170811
  Receipt Date: 20170811
  Transmission Date: 20171127
  Serious: No
  Sender: FDA-Public Use
  Company Number: US-SUN PHARMACEUTICAL INDUSTRIES LTD-2016US-123178

PATIENT
  Sex: Female

DRUGS (1)
  1. EURAX [Suspect]
     Active Substance: CROTAMITON
     Indication: PRURITUS
     Dosage: UNK
     Route: 065

REACTIONS (2)
  - Drug dose omission [Unknown]
  - Drug dispensing error [Unknown]
